FAERS Safety Report 7217001-0 (Version None)
Quarter: 2011Q1

REPORT INFORMATION
  Report Type: 
  Country: None (occurrence: None)
  Receive Date: 20110110
  Receipt Date: 20101021
  Transmission Date: 20110831
  Serious: No
  Sender: FDA-Public Use
  Company Number: A0888042A

PATIENT
  Age: 32 Year
  Sex: Female

DRUGS (3)
  1. LISINOPRIL [Concomitant]
  2. REQUIP XL [Suspect]
     Indication: RESTLESS LEGS SYNDROME
     Dosage: 2MG PER DAY
     Route: 048
     Dates: start: 20100901
  3. TYLENOL-500 [Concomitant]

REACTIONS (7)
  - SENSATION OF HEAVINESS [None]
  - OVERDOSE [None]
  - PAIN IN EXTREMITY [None]
  - INSOMNIA [None]
  - HEADACHE [None]
  - HEART RATE INCREASED [None]
  - BACK PAIN [None]
